FAERS Safety Report 6284455-6 (Version None)
Quarter: 2009Q3

REPORT INFORMATION
  Report Type: 
  Country: None (occurrence: None)
  Receive Date: 20090722
  Receipt Date: 20090707
  Transmission Date: 20100115
  Serious: Yes (Hospitalization)
  Sender: FDA-Public Use
  Company Number: 007016

PATIENT
  Age: 68 Year
  Sex: Male

DRUGS (2)
  1. PLETAL [Suspect]
     Indication: ISCHAEMIA
     Dosage: 100 MG, ORAL
     Route: 048
     Dates: start: 20090626, end: 20090628
  2. FLUVASTATIN [Concomitant]

REACTIONS (2)
  - ARRHYTHMIA [None]
  - TACHYCARDIA [None]
